FAERS Safety Report 8472607-6 (Version None)
Quarter: 2012Q2

REPORT INFORMATION
  Report Type: 
  Country: None (occurrence: None)
  Receive Date: 20120627
  Receipt Date: 20120322
  Transmission Date: 20120825
  Serious: No
  Sender: FDA-Public Use
  Company Number: US-AMGEN-USASP2011067830

PATIENT
  Age: 56 Year
  Sex: Female
  Weight: 82 kg

DRUGS (1)
  1. PROCRIT [Suspect]
     Indication: PRODUCT USED FOR UNKNOWN INDICATION
     Dosage: 4000 IU, QWK
     Route: 058

REACTIONS (2)
  - PAIN [None]
  - INFLUENZA LIKE ILLNESS [None]
